FAERS Safety Report 5637354-4 (Version None)
Quarter: 2008Q1

REPORT INFORMATION
  Report Type: 
  Country: None (occurrence: None)
  Receive Date: 20080219
  Receipt Date: 20080208
  Transmission Date: 20080703
  Serious: Yes (Death, Life-Threatening)
  Sender: FDA-Public Use
  Company Number: 20074365

PATIENT
  Sex: Male

DRUGS (1)
  1. LIORESAL [Suspect]
     Indication: MUSCLE SPASTICITY
     Dosage: 100 MG, DAILY, INTRATHECAL
     Route: 037

REACTIONS (8)
  - COMA [None]
  - FATIGUE [None]
  - GASTRIC HAEMORRHAGE [None]
  - LETHARGY [None]
  - LUNG DISORDER [None]
  - RESPIRATORY DEPRESSION [None]
  - SKIN DISCOLOURATION [None]
  - UNDERDOSE [None]
